FAERS Safety Report 10562327 (Version 1)
Quarter: 2014Q4

REPORT INFORMATION
  Report Type: Spontaneous
  Country: IT (occurrence: None)
  Receive Date: 20141031
  Receipt Date: 20141031
  Transmission Date: 20150529
  Serious: Yes (Death, Other)
  Sender: FDA-Public Use
  Company Number: IT2014GSK013372

PATIENT
  Age: 35 Year

DRUGS (4)
  1. FOSAMPRENAVIR (FOSAMPRENAVIR) UNKNOWN [Suspect]
     Active Substance: FOSAMPRENAVIR
     Indication: HIV INFECTION
  2. SORAFENIB (SORAFENIB) (SORAFENIB) [Suspect]
     Active Substance: SORAFENIB
  3. EMTRICITABINE/TENOFOVIR DISOPROXIL FUMARATE(EMTRICITABINE + TENOFOVIR DISOPROXIL FUMARATE) [Suspect]
     Active Substance: EMTRICITABINE\TENOFOVIR DISOPROXIL
     Indication: HIV INFECTION
  4. RITONAVIR (RITONAVIR) UNKNOWN [Suspect]
     Active Substance: RITONAVIR
     Indication: HIV INFECTION

REACTIONS (6)
  - Hypertension [None]
  - Fatigue [None]
  - Drug interaction [None]
  - Diarrhoea [None]
  - Hepatocellular carcinoma [None]
  - Hepatic failure [None]
